FAERS Safety Report 11688898 (Version 1)
Quarter: 2015Q4

REPORT INFORMATION
  Report Type: Spontaneous
  Country: US (occurrence: None)
  Receive Date: 20151030
  Receipt Date: 20151030
  Transmission Date: 20160304
  Serious: Yes (Hospitalization)
  Sender: FDA-Public Use
  Company Number: None

PATIENT
  Age: 8 Year
  Sex: Female
  Weight: 19.6 kg

DRUGS (9)
  1. HYDROCORTISONE. [Suspect]
     Active Substance: HYDROCORTISONE
     Dates: end: 20151015
  2. CIPROFLOXACIN. [Concomitant]
     Active Substance: CIPROFLOXACIN
  3. CYCLOSPHAMIDE [Suspect]
     Active Substance: CYCLOPHOSPHAMIDE
     Dates: end: 20151001
  4. METHOTREXATE [Suspect]
     Active Substance: METHOTREXATE
     Dates: end: 20151015
  5. CYTARABINE. [Suspect]
     Active Substance: CYTARABINE
     Dates: end: 20151011
  6. MERCAPTOPURINE. [Suspect]
     Active Substance: MERCAPTOPURINE
     Dates: end: 20151014
  7. ONCASPAR [Suspect]
     Active Substance: PEGASPARGASE
     Dates: end: 20151015
  8. ERTAPENUM [Concomitant]
  9. TAZOCIN [Concomitant]
     Active Substance: PIPERACILLIN SODIUM\TAZOBACTAM SODIUM

REACTIONS (7)
  - Fungal infection [None]
  - Lung disorder [None]
  - Spleen disorder [None]
  - Liver disorder [None]
  - Renal disorder [None]
  - Abdominal wound dehiscence [None]
  - Pseudomonal bacteraemia [None]

NARRATIVE: CASE EVENT DATE: 20151022
